FAERS Safety Report 15859233 (Version 2)
Quarter: 2019Q1

REPORT INFORMATION
  Report Type: Report from Study
  Country: US (occurrence: US)
  Receive Date: 20190123
  Receipt Date: 20190312
  Transmission Date: 20190417
  Serious: Yes (Other)
  Sender: FDA-Public Use
  Company Number: US-JAZZ-2018-US-004739

PATIENT
  Sex: Female

DRUGS (14)
  1. LEXAPRO [Concomitant]
     Active Substance: ESCITALOPRAM OXALATE
  2. VYVANSE [Concomitant]
     Active Substance: LISDEXAMFETAMINE DIMESYLATE
  3. HALOPERIDOL. [Concomitant]
     Active Substance: HALOPERIDOL
  4. METFORMIN HCL [Concomitant]
     Active Substance: METFORMIN HYDROCHLORIDE
  5. MIDODRINE HCL [Concomitant]
     Active Substance: MIDODRINE HYDROCHLORIDE
  6. XYREM [Suspect]
     Active Substance: SODIUM OXYBATE
     Indication: NARCOLEPSY
     Dosage: 2.25 G, BID
     Route: 048
     Dates: start: 201704, end: 201704
  7. LATUDA [Concomitant]
     Active Substance: LURASIDONE HYDROCHLORIDE
  8. XYREM [Suspect]
     Active Substance: SODIUM OXYBATE
     Dosage: 4.5 G, SECOND DOSE
     Route: 048
     Dates: start: 201708
  9. XYREM [Suspect]
     Active Substance: SODIUM OXYBATE
     Indication: CATAPLEXY
     Dosage: DOSE ADJUSTMENTS
     Route: 048
     Dates: start: 201704, end: 201708
  10. MODAFINIL. [Concomitant]
     Active Substance: MODAFINIL
  11. XYREM [Suspect]
     Active Substance: SODIUM OXYBATE
     Dosage: 5.25 G, FIRST DOSE
     Route: 048
     Dates: start: 201708
  12. LITHIUM CARBONATE. [Concomitant]
     Active Substance: LITHIUM CARBONATE
  13. ZYRTEC [Concomitant]
     Active Substance: CETIRIZINE HYDROCHLORIDE
  14. YASMIN [Concomitant]
     Active Substance: DROSPIRENONE\ETHINYL ESTRADIOL

REACTIONS (5)
  - Chronic inflammatory demyelinating polyradiculoneuropathy [Not Recovered/Not Resolved]
  - Small fibre neuropathy [Recovering/Resolving]
  - Autonomic nervous system imbalance [Not Recovered/Not Resolved]
  - Immunodeficiency [Not Recovered/Not Resolved]
  - Encephalitis autoimmune [Not Recovered/Not Resolved]
